FAERS Safety Report 8771504 (Version 3)
Quarter: 2012Q4

REPORT INFORMATION
  Report Type: 
  Country: FR (occurrence: FR)
  Receive Date: 20120906
  Receipt Date: 20120923
  Transmission Date: 20130627
  Serious: Yes (Hospitalization)
  Sender: FDA-Public Use
  Company Number: FR-ABBOTT-12P-056-0932679-00

PATIENT
  Sex: Female

DRUGS (8)
  1. SEROPLEX [Suspect]
     Indication: PRODUCT USED FOR UNKNOWN INDICATION
     Route: 048
     Dates: start: 20120123, end: 20120216
  2. DOMPERIDONE [Suspect]
     Indication: PRODUCT USED FOR UNKNOWN INDICATION
     Route: 048
     Dates: start: 201201, end: 20120216
  3. AZILECT [Concomitant]
     Indication: PRODUCT USED FOR UNKNOWN INDICATION
     Route: 048
     Dates: start: 20120215
  4. STALEVO [Concomitant]
     Indication: PARKINSON^S DISEASE
     Dosage: 100mg/25mg/200mg
     Route: 048
  5. REQUIP [Concomitant]
     Indication: PARKINSON^S DISEASE
     Route: 048
  6. STALEVO [Concomitant]
     Indication: PARKINSON^S DISEASE
     Dosage: 50mg/12.5mg/200mg TID
     Route: 048
  7. MADOPAR [Concomitant]
     Indication: PARKINSON^S DISEASE
     Dosage: 50mg/12.5mg
     Route: 048
  8. DETENSIEL [Concomitant]
     Indication: HYPERTENSION
     Route: 048

REACTIONS (1)
  - Dyskinesia [Recovering/Resolving]
